FAERS Safety Report 5136781-1 (Version None)
Quarter: 2006Q4

REPORT INFORMATION
  Report Type: 
  Country: None (occurrence: None)
  Receive Date: 20061023
  Receipt Date: 20061017
  Transmission Date: 20070319
  Serious: Yes (Hospitalization, Other)
  Sender: FDA-Public Use
  Company Number: 002#2#2006-00035

PATIENT
  Age: 46 Year
  Sex: Male
  Weight: 102.0593 kg

DRUGS (2)
  1. NULEV-0.125MG-ORALLY-DISINTEGRATING-TABLET (HYOSCYAMINE SULFATE) [Suspect]
     Indication: GASTRIC DISORDER
     Dosage: .125MG, LASNEC, ORAL
     Route: 048
     Dates: start: 20050101, end: 20050801
  2. LISINOPRIL [Concomitant]

REACTIONS (7)
  - ABSCESS [None]
  - DIVERTICULAR FISTULA [None]
  - GASTRIC DISORDER [None]
  - IMPAIRED WORK ABILITY [None]
  - LARGE INTESTINE PERFORATION [None]
  - RECTAL HAEMORRHAGE [None]
  - SCAR [None]
